FAERS Safety Report 15785465 (Version 1)
Quarter: 2019Q1

REPORT INFORMATION
  Report Type: Spontaneous
  Country: PR (occurrence: PR)
  Receive Date: 20190103
  Receipt Date: 20190103
  Transmission Date: 20190417
  Serious: No
  Sender: FDA-Public Use
  Company Number: PR-PFIZER INC-2019001424

PATIENT
  Age: 66 Year
  Sex: Male
  Weight: 72 kg

DRUGS (1)
  1. SUTENT [Suspect]
     Active Substance: SUNITINIB MALATE
     Indication: MALIGNANT NEOPLASM OF RENAL PELVIS
     Dosage: 50 MG, CYCLIC (1 CAP DAILY X 28 DAYS /14 OFF)
     Route: 048
     Dates: start: 20181119, end: 2018

REACTIONS (5)
  - Genital infection fungal [Recovering/Resolving]
  - Swelling face [Recovering/Resolving]
  - Fungal infection [Recovering/Resolving]
  - Nervousness [Recovering/Resolving]
  - Headache [Recovering/Resolving]

NARRATIVE: CASE EVENT DATE: 20181213
